FAERS Safety Report 20092076 (Version 2)
Quarter: 2023Q1

REPORT INFORMATION
  Report Type: Spontaneous
  Country: US (occurrence: US)
  Receive Date: 20211119
  Receipt Date: 20230222
  Transmission Date: 20230418
  Serious: Yes (Other)
  Sender: FDA-Public Use
  Company Number: US-MYLANLABS-2021M1084976

PATIENT
  Age: 62 Year
  Sex: Male
  Weight: 136.07 kg

DRUGS (8)
  1. VALSARTAN [Suspect]
     Active Substance: VALSARTAN
     Indication: Product used for unknown indication
     Dosage: UNK
     Route: 065
  2. HYDROCHLOROTHIAZIDE\VALSARTAN [Suspect]
     Active Substance: HYDROCHLOROTHIAZIDE\VALSARTAN
     Indication: Hypertension
     Dosage: UNK (320/25 MG)
     Route: 065
     Dates: start: 20191226, end: 20200623
  3. HYDROCHLOROTHIAZIDE\VALSARTAN [Suspect]
     Active Substance: HYDROCHLOROTHIAZIDE\VALSARTAN
     Indication: Hypertension
     Dosage: UNK (320/25 MG)
     Route: 065
     Dates: start: 20190402, end: 20190922
  4. CHONDROITIN;GLUCOSAMINE [Concomitant]
     Indication: Arthropathy
     Dosage: UNK (1500/1250 MG 2 TIMES A DAY)
     Route: 065
     Dates: start: 2010
  5. OMEGA 3 [Concomitant]
     Active Substance: CAPSAICIN
     Indication: Cardiac disorder
     Dosage: 1000 MILLIGRAM, QD
     Route: 065
     Dates: start: 2010
  6. VITAMIN B12 [Concomitant]
     Active Substance: CYANOCOBALAMIN
     Indication: Supplementation therapy
     Dosage: 1000 MILLIGRAM, QD
     Route: 065
     Dates: start: 2012
  7. HERBALS\TURMERIC [Concomitant]
     Active Substance: HERBALS\TURMERIC
     Indication: Antioxidant therapy
     Dosage: 500 MILLIGRAM, QD
     Route: 065
     Dates: start: 2012
  8. COENZYME Q10 [Concomitant]
     Active Substance: DIETARY SUPPLEMENT\UBIDECARENONE
     Indication: Cardiac disorder
     Dosage: 200 MILLIGRAM, QD
     Route: 065
     Dates: start: 2010

REACTIONS (3)
  - Prostate cancer [Unknown]
  - Renal cancer stage I [Unknown]
  - Metastasis [Unknown]

NARRATIVE: CASE EVENT DATE: 20191112
